FAERS Safety Report 9358807 (Version 2)
Quarter: 2013Q2

REPORT INFORMATION
  Report Type: Spontaneous
  Country: US (occurrence: US)
  Receive Date: 20130620
  Receipt Date: 20130627
  Transmission Date: 20140414
  Serious: No
  Sender: FDA-Public Use
  Company Number: US-TEVA-412665USA

PATIENT
  Age: 67 Year
  Sex: Male
  Weight: 76.27 kg

DRUGS (2)
  1. QVAR [Suspect]
     Indication: ASTHMA
     Dates: start: 20130606
  2. ACYCLOVIR [Concomitant]
     Indication: GENITAL HERPES
     Dosage: 400 MILLIGRAM DAILY;
     Route: 048

REACTIONS (1)
  - Libido decreased [Not Recovered/Not Resolved]
